FAERS Safety Report 7463313-5 (Version None)
Quarter: 2011Q2

REPORT INFORMATION
  Report Type: 
  Country: None (occurrence: None)
  Receive Date: 20110506
  Receipt Date: 20110502
  Transmission Date: 20111010
  Serious: Yes (Other)
  Sender: FDA-Public Use
  Company Number: FR-AMGEN-FRASP2011015838

PATIENT
  Sex: Male

DRUGS (1)
  1. ARANESP [Suspect]
     Indication: RENAL FAILURE
     Dosage: 60 A?G, QWK
     Dates: start: 20091201, end: 20100201

REACTIONS (5)
  - VOMITING [None]
  - NAUSEA [None]
  - TONGUE NEOPLASM MALIGNANT STAGE UNSPECIFIED [None]
  - DIPLEGIA [None]
  - MALAISE [None]
